FAERS Safety Report 4502467-7 (Version None)
Quarter: 2004Q4

REPORT INFORMATION
  Report Type: 
  Country: None (occurrence: None)
  Receive Date: 20041110
  Receipt Date: 20041029
  Transmission Date: 20050328
  Serious: No
  Sender: FDA-Public Use
  Company Number: 2004AP05588

PATIENT
  Age: 77 Year
  Sex: Female

DRUGS (16)
  1. DIPRIVAN [Suspect]
     Indication: INDUCTION OF ANAESTHESIA
     Dosage: 1400 MG DAILY PU
     Dates: start: 20040220, end: 20040220
  2. DIPRIVAN [Suspect]
     Indication: MAINTENANCE OF ANAESTHESIA
     Dosage: 1400 MG DAILY PU
     Dates: start: 20040220, end: 20040220
  3. VEEN D [Suspect]
  4. VEEN-F [Suspect]
  5. ADALAT [Concomitant]
  6. FRANDOL [Concomitant]
  7. FENTANYL [Concomitant]
  8. MUSCULAX [Concomitant]
  9. PERDIPINE [Concomitant]
  10. HERBESSER ^DELTA^ [Concomitant]
  11. EPHEDRINE SUL CAP [Concomitant]
  12. ATROPINE SULPHATE [Concomitant]
  13. ANITREX [Concomitant]
  14. HEPARIN [Concomitant]
  15. VEEN D [Concomitant]
  16. VEEN-F [Concomitant]

REACTIONS (8)
  - COMA [None]
  - DEPRESSED LEVEL OF CONSCIOUSNESS [None]
  - INJECTION SITE EXTRAVASATION [None]
  - INJECTION SITE SWELLING [None]
  - MEDICATION ERROR [None]
  - OEDEMA PERIPHERAL [None]
  - POST PROCEDURAL COMPLICATION [None]
  - RESPIRATORY DEPRESSION [None]
